FAERS Safety Report 10792471 (Version 1)
Quarter: 2015Q1

REPORT INFORMATION
  Report Type: Spontaneous
  Country: ES (occurrence: ES)
  Receive Date: 20150213
  Receipt Date: 20150213
  Transmission Date: 20150721
  Serious: Yes (Death, Hospitalization)
  Sender: FDA-Public Use
  Company Number: ES-SA-2015SA016035

PATIENT
  Age: 70 Year
  Sex: Male

DRUGS (8)
  1. CARBOPLATIN. [Suspect]
     Active Substance: CARBOPLATIN
     Indication: SMALL CELL LUNG CANCER
     Dosage: 396 MG
     Route: 042
     Dates: start: 20140219, end: 20140219
  2. DINISOR [Concomitant]
     Indication: HYPERTENSION
     Dosage: 1 CP
     Route: 048
     Dates: start: 2007, end: 20140301
  3. SEGURIL [Suspect]
     Active Substance: FUROSEMIDE
     Indication: HYPERTENSION
     Dosage: 1-0-0, 30 TABLETS.
     Route: 048
     Dates: start: 2011, end: 20140301
  4. CRESTOR [Concomitant]
     Active Substance: ROSUVASTATIN CALCIUM
     Indication: DYSLIPIDAEMIA
     Dosage: 1-0-1
     Route: 048
     Dates: start: 201303, end: 20140301
  5. SINTROM [Suspect]
     Active Substance: ACENOCOUMAROL
     Indication: ATRIAL FIBRILLATION
     Dosage: SP, 20 TABLETS.
     Route: 048
     Dates: start: 2007, end: 20140301
  6. MICARDIS [Concomitant]
     Active Substance: TELMISARTAN
     Indication: ATRIAL FIBRILLATION
     Dosage: 0-0-, 28 TABLETS
     Route: 048
     Dates: start: 2007, end: 20140301
  7. ETOPOSIDO [Suspect]
     Active Substance: ETOPOSIDE
     Indication: SMALL CELL LUNG CANCER
     Dosage: 180 MG (1 CICLO)
     Route: 042
     Dates: start: 20140219, end: 20140219
  8. ARCOXIA [Suspect]
     Active Substance: ETORICOXIB
     Indication: PAIN
     Dosage: 1 CP, 28 TABLETS.
     Route: 048
     Dates: start: 201303, end: 20140301

REACTIONS (4)
  - Acute kidney injury [Fatal]
  - Hepatitis [Fatal]
  - Pancytopenia [Fatal]
  - Coagulopathy [Fatal]

NARRATIVE: CASE EVENT DATE: 20140302
